FAERS Safety Report 5194313-6 (Version None)
Quarter: 2006Q4

REPORT INFORMATION
  Report Type: 
  Country: None (occurrence: None)
  Receive Date: 20061228
  Receipt Date: 20060926
  Transmission Date: 20070319
  Serious: Yes (Other)
  Sender: FDA-Public Use
  Company Number: DE-SHR-DE-2006-028580

PATIENT
  Sex: Female

DRUGS (1)
  1. BETAFERON [Suspect]
     Route: 058

REACTIONS (2)
  - NECROSIS [None]
  - THROMBOSIS [None]
